FAERS Safety Report 4818031-6 (Version None)
Quarter: 2005Q4

REPORT INFORMATION
  Report Type: 
  Country: None (occurrence: None)
  Receive Date: 20051102
  Receipt Date: 20050323
  Transmission Date: 20060501
  Serious: Yes (Hospitalization)
  Sender: FDA-Public Use
  Company Number: 2005AP01871

PATIENT
  Age: 24702 Day
  Sex: Male
  Weight: 41.8 kg

DRUGS (6)
  1. IRESSA [Suspect]
     Indication: TONGUE CANCER METASTATIC
     Route: 048
     Dates: start: 20050118, end: 20050320
  2. IRESSA [Suspect]
     Route: 048
     Dates: start: 20050321
  3. CISPLATIN [Suspect]
     Indication: TONGUE NEOPLASM MALIGNANT STAGE UNSPECIFIED
     Route: 058
     Dates: start: 20050218, end: 20050218
  4. CISPLATIN [Suspect]
     Route: 058
     Dates: start: 20050301, end: 20050301
  5. RADIOTHERAPY [Suspect]
     Indication: TONGUE NEOPLASM MALIGNANT STAGE UNSPECIFIED
     Dates: start: 20050214, end: 20050214
  6. FENTANYL [Concomitant]
     Indication: PAIN
     Route: 061
     Dates: start: 20050321, end: 20050323

REACTIONS (4)
  - DIARRHOEA [None]
  - NAUSEA [None]
  - PHARYNGITIS [None]
  - VOMITING [None]
